FAERS Safety Report 5633169-1 (Version None)
Quarter: 2008Q1

REPORT INFORMATION
  Report Type: 
  Country: None (occurrence: None)
  Receive Date: 20080221
  Receipt Date: 20080214
  Transmission Date: 20080703
  Serious: Yes (Other)
  Sender: FDA-Public Use
  Company Number: JP-AVENTIS-200810502JP

PATIENT
  Sex: Female

DRUGS (3)
  1. LANTUS [Suspect]
     Dosage: DOSE: 10 UNITS
     Route: 058
  2. OPTICLIK (INSULIN INJECTION PEN) [Suspect]
  3. NOVORAPID [Concomitant]
     Dosage: DOSE: 8+6+6 UNITS/DAY

REACTIONS (4)
  - BACK PAIN [None]
  - PANCREATIC DISORDER [None]
  - PANCREATIC ENLARGEMENT [None]
  - PANCREATIC ENZYMES ABNORMAL [None]
